FAERS Safety Report 6676006-9 (Version None)
Quarter: 2010Q2

REPORT INFORMATION
  Report Type: 
  Country: None (occurrence: None)
  Receive Date: 20100412
  Receipt Date: 20100330
  Transmission Date: 20101027
  Serious: No
  Sender: FDA-Public Use
  Company Number: 2005BI003990

PATIENT
  Age: 35 Year
  Sex: Female
  Weight: 47 kg

DRUGS (6)
  1. TYSABRI [Suspect]
     Indication: MULTIPLE SCLEROSIS
     Route: 042
     Dates: start: 20041201, end: 20041201
  2. TYSABRI [Suspect]
     Route: 042
     Dates: start: 20050214, end: 20050201
  3. AVONEX [Concomitant]
     Indication: MULTIPLE SCLEROSIS
     Route: 030
     Dates: start: 19970601, end: 20041101
  4. AVONEX [Concomitant]
     Route: 030
     Dates: start: 20030101
  5. MOTRIN [Concomitant]
  6. ANAPROX [Concomitant]

REACTIONS (3)
  - CELLULITIS STAPHYLOCOCCAL [None]
  - DRUG HYPERSENSITIVITY [None]
  - STAPHYLOCOCCAL INFECTION [None]
